FAERS Safety Report 20385788 (Version 7)
Quarter: 2025Q2

REPORT INFORMATION
  Report Type: Spontaneous
  Country: JP (occurrence: JP)
  Receive Date: 20220127
  Receipt Date: 20250618
  Transmission Date: 20250716
  Serious: Yes (Hospitalization)
  Sender: BIOGEN
  Company Number: JP-BIOGEN-2022BI01088452

PATIENT
  Age: 49 Year
  Sex: Female
  Weight: 61.8 kg

DRUGS (4)
  1. TYSABRI [Suspect]
     Active Substance: NATALIZUMAB
     Indication: Relapsing-remitting multiple sclerosis
     Dosage: NUMBER OF ADMINISTERED DOSES OF TYSABRI WAS 13.
     Route: 050
     Dates: start: 20160721, end: 20170824
  2. TYSABRI [Suspect]
     Active Substance: NATALIZUMAB
     Dosage: NUMBER OF ADMINISTERED DOSES OF TYSABRI WAS 35.
     Route: 050
     Dates: start: 20170928, end: 20210914
  3. ELDECALCITOL [Concomitant]
     Active Substance: ELDECALCITOL
     Indication: Relapsing-remitting multiple sclerosis
     Route: 050
  4. METHYLPREDNISOLONE [Concomitant]
     Active Substance: METHYLPREDNISOLONE
     Indication: Multiple sclerosis
     Route: 050
     Dates: start: 20211108, end: 20211110

REACTIONS (2)
  - Progressive multifocal leukoencephalopathy [Recovered/Resolved with Sequelae]
  - Prescribed underdose [Recovered/Resolved]

NARRATIVE: CASE EVENT DATE: 20170928
